FAERS Safety Report 25876038 (Version 3)
Quarter: 2025Q4

REPORT INFORMATION
  Report Type: Spontaneous
  Country: US (occurrence: US)
  Receive Date: 20251003
  Receipt Date: 20251030
  Transmission Date: 20260118
  Serious: No
  Sender: TOLMAR
  Company Number: US-Tolmar-TLM-2025-06785

PATIENT

DRUGS (3)
  1. ELIGARD [Suspect]
     Active Substance: LEUPROLIDE ACETATE
     Indication: Product used for unknown indication
     Dosage: NDC: 62935-461-50?GTIN:00362935461500?SERIAL: 8938478363970?EXPIRATION DATE: DEC-2026; NOV-2026; 30-
  2. ELIGARD [Suspect]
     Active Substance: LEUPROLIDE ACETATE
     Dosage: REPLACEMENT DOSE GIVEN
     Route: 065
  3. DEVICE [Suspect]
     Active Substance: DEVICE
     Indication: Product used for unknown indication
     Dosage: NDC: 62935-461-50?GTIN:00362935461500?SERIAL: 8938478363970?EXPIRATION DATE: DEC-2026; NOV-2026; 30-

REACTIONS (5)
  - Intercepted product preparation error [Unknown]
  - Device issue [Unknown]
  - Device leakage [Unknown]
  - Wrong technique in product usage process [Unknown]
  - Product quality issue [Unknown]
